FAERS Safety Report 5275676-X (Version None)
Quarter: 2007Q1

REPORT INFORMATION
  Report Type: 
  Country: None (occurrence: None)
  Receive Date: 20061213
  Receipt Date: 20040427
  Transmission Date: 20070707
  Serious: No
  Sender: FDA-Public Use
  Company Number: 2004UW06557

PATIENT
  Age: 45 Year
  Sex: Male
  Weight: 81.6475 kg

DRUGS (8)
  1. SEROQUEL [Suspect]
     Indication: BIPOLAR DISORDER
     Dosage: 100 MG DAILY PO
     Route: 048
     Dates: start: 20020215
  2. DIPROLENE [Concomitant]
  3. PROZAC [Concomitant]
  4. WELLBUTRIN [Concomitant]
  5. ATIVAN [Concomitant]
  6. CELEXA [Concomitant]
  7. NEURONTIN [Concomitant]
  8. DEPAKOTE [Concomitant]

REACTIONS (3)
  - CATARACT [None]
  - INTRAOCULAR PRESSURE INCREASED [None]
  - VISUAL ACUITY REDUCED [None]
